FAERS Safety Report 9329040 (Version 1)
Quarter: 2013Q2

REPORT INFORMATION
  Report Type: Spontaneous
  Country: US (occurrence: US)
  Receive Date: 20130604
  Receipt Date: 20130604
  Transmission Date: 20140414
  Serious: No
  Sender: FDA-Public Use
  Company Number: US-SANOFI-AVENTIS-2012SA072187

PATIENT
  Age: 60 Year
  Sex: Female

DRUGS (4)
  1. LANTUS SOLOSTAR [Suspect]
     Dosage: DOSE:15 UNIT(S)
     Route: 058
     Dates: start: 20120925
  2. SOLOSTAR [Suspect]
     Dates: start: 20120925
  3. INSULIN [Suspect]
     Route: 065
  4. ORAL ANTIDIABETICS [Suspect]
     Route: 048

REACTIONS (3)
  - Hyposomnia [Unknown]
  - Sleep disorder [Unknown]
  - Blood glucose increased [Not Recovered/Not Resolved]
